FAERS Safety Report 4641781-1 (Version None)
Quarter: 2005Q2

REPORT INFORMATION
  Report Type: 
  Country: None (occurrence: None)
  Receive Date: 20050421
  Receipt Date: 20050303
  Transmission Date: 20051028
  Serious: Yes (Other)
  Sender: FDA-Public Use
  Company Number: JP-MERCK-0503USA01092

PATIENT
  Age: 56 Year
  Sex: Male

DRUGS (2)
  1. COZAAR [Suspect]
     Route: 048
     Dates: start: 20040930
  2. LIPITOR [Suspect]
     Route: 048
     Dates: start: 20020620, end: 20050224

REACTIONS (5)
  - ALANINE AMINOTRANSFERASE INCREASED [None]
  - ASPARTATE AMINOTRANSFERASE INCREASED [None]
  - BLOOD LACTATE DEHYDROGENASE INCREASED [None]
  - DYSPHASIA [None]
  - RHABDOMYOLYSIS [None]
